FAERS Safety Report 5759952-X (Version None)
Quarter: 2008Q2

REPORT INFORMATION
  Report Type: 
  Country: None (occurrence: None)
  Receive Date: 20080605
  Receipt Date: 20080312
  Transmission Date: 20081010
  Serious: Yes (Hospitalization)
  Sender: FDA-Public Use
  Company Number: FR-ROCHE-543248

PATIENT
  Sex: Female
  Weight: 5 kg

DRUGS (10)
  1. ROCEPHIN [Suspect]
     Indication: DRUG USE FOR UNKNOWN INDICATION
     Dosage: DOSAGE: 1 DOSE DAILY. FORM: INJECTABLE SOLUTION.
     Route: 042
     Dates: start: 20070803, end: 20070808
  2. GAVISCON [Concomitant]
     Indication: DRUG USE FOR UNKNOWN INDICATION
     Dosage: DOSE: ^2.5ML AFTER EVERY FEEDING BOTTLE^
     Route: 048
  3. GAVISCON [Concomitant]
     Dosage: DOSE: ^2.5ML AFTER EVERY FEEDING BOTTLE^
     Route: 048
  4. GAVISCON [Concomitant]
     Dosage: DOSE: ^2.5ML AFTER EVERY FEEDING BOTTLE^
     Route: 048
  5. GAVISCON [Concomitant]
     Dosage: DOSE: ^2.5ML AFTER EVERY FEEDING BOTTLE^
     Route: 048
  6. GAVISCON [Concomitant]
     Dosage: DOSE: ^2.5ML AFTER EVERY FEEDING BOTTLE^
     Route: 048
  7. GAVISCON [Concomitant]
     Dosage: DOSE: ^2.5ML AFTER EVERY FEEDING BOTTLE^
     Route: 048
  8. GAVISCON [Concomitant]
     Dosage: DOSE: ^2.5ML AFTER EVERY FEEDING BOTTLE^
     Route: 048
  9. MOTILIUM [Concomitant]
     Route: 048
  10. AMIKACIN [Concomitant]
     Indication: DRUG USE FOR UNKNOWN INDICATION
     Dosage: ONE INJECTION FOR 2 DAYS.
     Route: 042

REACTIONS (1)
  - CYTOLYTIC HEPATITIS [None]
